FAERS Safety Report 19946283 (Version 1)
Quarter: 2021Q4

REPORT INFORMATION
  Report Type: Spontaneous
  Country: DE (occurrence: DE)
  Receive Date: 20211012
  Receipt Date: 20211012
  Transmission Date: 20220303
  Serious: Yes (Hospitalization, Other)
  Sender: FDA-Public Use
  Company Number: DE-ADRED-06222-01

PATIENT
  Age: 84 Year
  Sex: Female
  Weight: 67 kg

DRUGS (7)
  1. RAMIPRIL [Suspect]
     Active Substance: RAMIPRIL
     Dosage: 5 MILLIGRAM, QD, 5 MG, 1-0-0-0, TABLETS
     Route: 048
  2. TORSEMIDE [Suspect]
     Active Substance: TORSEMIDE
     Dosage: 20 MILLIGRAM, QD, 20 MG, 1-0-0-0, TABLETS
     Route: 048
  3. EDOXABAN TOSYLATE [Suspect]
     Active Substance: EDOXABAN TOSYLATE
     Dosage: 60 MILLIGRAM, QD, 60 MG, 1-0-0-0, TABLETS
     Route: 048
  4. METOPROLOL [Concomitant]
     Active Substance: METOPROLOL
     Dosage: 95 MILLIGRAM, 95 MG, 1-0-0.5-0, RETARD-TABLETTEN
     Route: 048
  5. ATORVASTATIN [Concomitant]
     Active Substance: ATORVASTATIN
     Dosage: 40 MILLIGRAM, QD, 40 MG, 0-0-1-0, TABLETTEN
     Route: 048
  6. OMEPRAZOLE [Concomitant]
     Active Substance: OMEPRAZOLE
     Dosage: 20 MILLIGRAM, QD, 20 MG, 1-0-0-0, KAPSELN
     Route: 048
  7. CHOLECALCIFEROL [Concomitant]
     Active Substance: CHOLECALCIFEROL
     Dosage: 2000 INTERNATIONAL UNIT, QW, 20000 IE, DONNERSTAG 1, KAPSELN
     Route: 048

REACTIONS (7)
  - Dyspnoea [Unknown]
  - Acute kidney injury [Unknown]
  - Cardiac failure [Unknown]
  - Oedema peripheral [Unknown]
  - Labelled drug-drug interaction medication error [Unknown]
  - Product prescribing error [Unknown]
  - Product monitoring error [Unknown]
